FAERS Safety Report 7669914-3 (Version None)
Quarter: 2011Q3

REPORT INFORMATION
  Report Type: 
  Country: None (occurrence: None)
  Receive Date: 20110808
  Receipt Date: 20110728
  Transmission Date: 20111222
  Serious: Yes (Hospitalization, Other)
  Sender: FDA-Public Use
  Company Number: PHHY2011US59695

PATIENT
  Sex: Female

DRUGS (2)
  1. BACTRIM [Concomitant]
     Dosage: UNK UKN, UNK
  2. GILENYA [Suspect]
     Indication: MULTIPLE SCLEROSIS
     Dosage: 0.5 MG, QD
     Route: 048
     Dates: start: 20110404

REACTIONS (5)
  - CELLULITIS [None]
  - FEELING HOT [None]
  - ERYTHEMA [None]
  - INGROWN HAIR [None]
  - PAIN [None]
